FAERS Safety Report 6803288-2 (Version None)
Quarter: 2010Q2

REPORT INFORMATION
  Report Type: 
  Country: None (occurrence: None)
  Receive Date: 20100628
  Receipt Date: 20100616
  Transmission Date: 20101027
  Serious: Yes (Other)
  Sender: FDA-Public Use
  Company Number: US-PFIZER INC-2010061058

PATIENT
  Sex: Female
  Weight: 78.005 kg

DRUGS (5)
  1. ZOLOFT [Suspect]
     Indication: DEPRESSION
     Dosage: 100 MG, 1X/DAY
     Route: 048
  2. LYRICA [Suspect]
     Indication: FIBROMYALGIA
     Dosage: 300 MG, 1X/DAY
     Route: 048
  3. AMBIEN [Concomitant]
     Indication: SLEEP DISORDER
     Dosage: 10 MG, 1X/DAY
     Route: 048
  4. LUNESTA [Concomitant]
     Indication: SLEEP DISORDER
     Dosage: 2 MG, 1X/DAY
     Route: 048
  5. LORTAB [Concomitant]
     Indication: PAIN
     Dosage: 7.5 MG, 1X/DAY
     Route: 048

REACTIONS (6)
  - ANXIETY DISORDER [None]
  - ARTHRITIS [None]
  - DEPRESSION [None]
  - DIABETES MELLITUS [None]
  - FIBROMYALGIA [None]
  - NEURALGIA [None]
